FAERS Safety Report 9154867 (Version 1)
Quarter: 2013Q1

REPORT INFORMATION
  Report Type: Spontaneous
  Country: US (occurrence: None)
  Receive Date: 20130305
  Receipt Date: 20130305
  Transmission Date: 20140127
  Serious: Yes (Hospitalization)
  Sender: FDA-Public Use
  Company Number: None

PATIENT
  Age: 70 Year
  Sex: Male
  Weight: 172 kg

DRUGS (13)
  1. RIVAROXABAN [Suspect]
     Indication: ATRIAL FIBRILLATION
     Dosage: UNKNOWN DAILY PO
  2. AMIODARONE [Concomitant]
  3. HYDROCODONE [Concomitant]
  4. INSULIN [Concomitant]
  5. LORATADINE [Concomitant]
  6. METOPTOLOL [Concomitant]
  7. NITROGLYCERIN [Concomitant]
  8. DAPTOMYCIN [Concomitant]
  9. IRON SUCROSE [Concomitant]
  10. QUETIAPINE [Concomitant]
  11. PANTOPRAZOLE [Concomitant]
  12. TRAZODONE [Concomitant]
  13. ZOLPIDEM [Concomitant]

REACTIONS (6)
  - Gastrointestinal haemorrhage [None]
  - Anaemia [None]
  - Mental status changes [None]
  - Diverticulum intestinal haemorrhagic [None]
  - Renal impairment [None]
  - Tubulointerstitial nephritis [None]
